FAERS Safety Report 24125663 (Version 1)
Quarter: 2024Q3

REPORT INFORMATION
  Report Type: Spontaneous
  Country: GB (occurrence: GB)
  Receive Date: 20240723
  Receipt Date: 20240723
  Transmission Date: 20241017
  Serious: Yes (Hospitalization, Other)
  Sender: PFIZER
  Company Number: GB-HIKMA PHARMACEUTICALS-GB-H14001-24-06593

PATIENT
  Age: 73 Year
  Sex: Female
  Weight: 61 kg

DRUGS (3)
  1. PACLITAXEL [Suspect]
     Active Substance: PACLITAXEL
     Indication: Anal squamous cell carcinoma
     Dosage: 80 MILLIGRAM/SQ. METER, ON DAYS 1, 8 AND 15
     Route: 042
     Dates: start: 20221202, end: 20221202
  2. PACLITAXEL [Suspect]
     Active Substance: PACLITAXEL
     Dosage: 80 MILLIGRAM/SQ. METER
     Route: 042
     Dates: start: 20230509, end: 20230509
  3. CARBOPLATIN [Suspect]
     Active Substance: CARBOPLATIN
     Indication: Anal squamous cell carcinoma
     Dosage: UNK, AUC 5 (ON DAY 1 EACH 28-DAY CYCLE)
     Route: 042
     Dates: start: 20221202, end: 20230426

REACTIONS (10)
  - Hyponatraemia [Recovered/Resolved]
  - Ataxia [Not Recovered/Not Resolved]
  - Sensorimotor disorder [Unknown]
  - Hypoaesthesia [Unknown]
  - Pain in extremity [Unknown]
  - Condition aggravated [Unknown]
  - Gait disturbance [Unknown]
  - Speech sound disorder [Unknown]
  - Anxiety [Unknown]
  - Off label use [Unknown]

NARRATIVE: CASE EVENT DATE: 20230526
